FAERS Safety Report 13507799 (Version 1)
Quarter: 2017Q2

REPORT INFORMATION
  Report Type: Spontaneous
  Country: US (occurrence: US)
  Receive Date: 20170503
  Receipt Date: 20170503
  Transmission Date: 20170830
  Serious: No
  Sender: FDA-Public Use
  Company Number: US-PFIZER INC-2017102231

PATIENT
  Age: 72 Year
  Sex: Female
  Weight: 66.67 kg

DRUGS (3)
  1. GABAPENTIN. [Concomitant]
     Active Substance: GABAPENTIN
     Indication: NEUROPATHY PERIPHERAL
     Dosage: 300 MG, TWICE A DAY
     Dates: start: 201704, end: 20170415
  2. XALKORI [Suspect]
     Active Substance: CRIZOTINIB
     Indication: OVARIAN CANCER METASTATIC
     Dosage: 250 MG, ONCE A DAY
     Route: 048
     Dates: start: 201704, end: 20170415
  3. XELODA [Concomitant]
     Active Substance: CAPECITABINE
     Indication: NEOPLASM MALIGNANT
     Dosage: UNK
     Dates: start: 2016

REACTIONS (2)
  - Dysgeusia [Recovered/Resolved]
  - Product use in unapproved indication [Unknown]

NARRATIVE: CASE EVENT DATE: 201704
